FAERS Safety Report 15190215 (Version 1)
Quarter: 2018Q3

REPORT INFORMATION
  Report Type: Spontaneous
  Country: US (occurrence: US)
  Receive Date: 20180724
  Receipt Date: 20180724
  Transmission Date: 20181010
  Serious: Yes (Hospitalization)
  Sender: FDA-Public Use
  Company Number: US-LANNETT COMPANY, INC.-US-2018LAN000867

PATIENT
  Age: 34 Year
  Sex: Male

DRUGS (4)
  1. LOPINAVIR AND RITONAVIR [Suspect]
     Active Substance: LOPINAVIR\RITONAVIR
     Indication: HIV INFECTION
     Dosage: UNK
     Route: 065
  2. ABACAVIR/LAMIVUDINE [Suspect]
     Active Substance: ABACAVIR\LAMIVUDINE
     Indication: HIV INFECTION
     Dosage: UNK
     Route: 065
  3. SAQUINAVIR [Suspect]
     Active Substance: SAQUINAVIR
     Indication: HIV INFECTION
     Dosage: UNK
     Route: 065
  4. ERGOTAMINE [Interacting]
     Active Substance: CAFFEINE\ERGOTAMINE\ERGOTAMINE TARTRATE
     Indication: MIGRAINE
     Dosage: UNK
     Route: 065

REACTIONS (5)
  - Pain in extremity [Recovered/Resolved]
  - Drug interaction [Recovered/Resolved]
  - Peripheral coldness [Recovered/Resolved]
  - Peripheral swelling [Recovered/Resolved]
  - Ergot poisoning [Recovered/Resolved]
